FAERS Safety Report 5513142-4 (Version None)
Quarter: 2007Q4

REPORT INFORMATION
  Report Type: 
  Country: None (occurrence: None)
  Receive Date: 20071112
  Receipt Date: 20060908
  Transmission Date: 20080405
  Serious: Yes (Other)
  Sender: FDA-Public Use
  Company Number: US-BRISTOL-MYERS SQUIBB COMPANY-13505532

PATIENT
  Sex: Male

DRUGS (3)
  1. SUSTIVA [Suspect]
     Indication: HIV INFECTION
  2. ATRIPLA [Suspect]
     Indication: HIV INFECTION
     Route: 048
  3. TRUVADA [Suspect]
     Indication: HIV INFECTION

REACTIONS (4)
  - FEELING ABNORMAL [None]
  - HALLUCINATION [None]
  - STOMACH DISCOMFORT [None]
  - SUICIDAL IDEATION [None]
